FAERS Safety Report 25370904 (Version 7)
Quarter: 2025Q4

REPORT INFORMATION
  Report Type: Report from Study
  Country: EU (occurrence: EU)
  Receive Date: 20250528
  Receipt Date: 20251126
  Transmission Date: 20260118
  Serious: No
  Sender: JOHNSON AND JOHNSON
  Company Number: EU-JNJFOC-20250529267

PATIENT
  Age: 43 Year
  Sex: Male

DRUGS (4)
  1. ESKETAMINE [Suspect]
     Active Substance: ESKETAMINE
     Indication: Depression
     Dosage: 84 MG (3 DEVICES) (RECEIVED DOSES ON 23-MAY-2022, 27-MAY-2022, 30-MAY-2022, 09-JUN-2022, 13-JUN-2022
     Route: 045
     Dates: start: 20220519, end: 20250127
  2. ESKETAMINE [Suspect]
     Active Substance: ESKETAMINE
     Dosage: 84 MG (3 DEVICES) (RECEIVED DOSES ON 16-DEC-2021, 20-DEC-2021, 23-DEC-2021, 27-DEC-2021, 30-DEC-2021
     Route: 045
     Dates: start: 20211213, end: 20220505
  3. ESKETAMINE [Suspect]
     Active Substance: ESKETAMINE
     Dosage: 56 MG (2 DEVICES)
     Route: 045
     Dates: start: 20220512, end: 20220512
  4. ESKETAMINE [Suspect]
     Active Substance: ESKETAMINE
     Dosage: 56 MG (2 DEVICES) (RECEIVED DOSE ON 06-DEC-2021)
     Route: 045
     Dates: start: 20211203, end: 20211209

REACTIONS (3)
  - Calculus urinary [Recovered/Resolved]
  - Disturbance in attention [Recovered/Resolved]
  - Depression [Recovered/Resolved]

NARRATIVE: CASE EVENT DATE: 20220801
